FAERS Safety Report 24288882 (Version 2)
Quarter: 2024Q3

REPORT INFORMATION
  Report Type: Report from Study
  Country: US (occurrence: US)
  Receive Date: 20240906
  Receipt Date: 20240916
  Transmission Date: 20241016
  Serious: Yes (Life-Threatening)
  Sender: TAKEDA
  Company Number: US-TAKEDA-2023TUS042593

PATIENT
  Sex: Female

DRUGS (4)
  1. ECALLANTIDE [Suspect]
     Active Substance: ECALLANTIDE
     Indication: Hereditary angioedema
     Dosage: UNK
     Route: 058
     Dates: start: 20191028
  2. ECALLANTIDE [Suspect]
     Active Substance: ECALLANTIDE
     Dosage: 3 DOSAGE FORM
     Route: 058
     Dates: start: 20191029
  3. ECALLANTIDE [Suspect]
     Active Substance: ECALLANTIDE
     Dosage: 30 MILLIGRAM
     Route: 058
  4. ECALLANTIDE [Suspect]
     Active Substance: ECALLANTIDE
     Dosage: 30 MILLIGRAM
     Route: 058

REACTIONS (7)
  - Fear of death [Not Recovered/Not Resolved]
  - Tooth disorder [Not Recovered/Not Resolved]
  - COVID-19 [Not Recovered/Not Resolved]
  - Depressed mood [Not Recovered/Not Resolved]
  - Pharyngitis streptococcal [Unknown]
  - Tooth infection [Unknown]
  - Product use issue [Not Recovered/Not Resolved]
